FAERS Safety Report 8900853 (Version 1)
Quarter: 2012Q4

REPORT INFORMATION
  Report Type: Report from Study
  Country: FR (occurrence: FR)
  Receive Date: 20121109
  Receipt Date: 20121109
  Transmission Date: 20130627
  Serious: Yes (Hospitalization)
  Sender: FDA-Public Use
  Company Number: FR-ROCHE-473688

PATIENT
  Age: 68 Year
  Sex: Male

DRUGS (4)
  1. BEVACIZUMAB [Suspect]
     Indication: HEPATIC NEOPLASM MALIGNANT
     Route: 042
     Dates: start: 20061003, end: 20061003
  2. BEVACIZUMAB [Suspect]
     Route: 042
     Dates: start: 20061017, end: 20061017
  3. BEVACIZUMAB [Suspect]
     Route: 042
     Dates: start: 20061031, end: 20061031
  4. BEVACIZUMAB [Suspect]
     Route: 042

REACTIONS (4)
  - Jaundice [Recovered/Resolved]
  - Abdominal pain [Recovered/Resolved]
  - Septic shock [Unknown]
  - Malaise [Unknown]
